FAERS Safety Report 4642446-2 (Version None)
Quarter: 2005Q2

REPORT INFORMATION
  Report Type: 
  Country: None (occurrence: None)
  Receive Date: 20050422
  Receipt Date: 20050303
  Transmission Date: 20051028
  Serious: Yes (Hospitalization)
  Sender: FDA-Public Use
  Company Number: JP-ROCHE-397935

PATIENT
  Age: 37 Year
  Sex: Female

DRUGS (4)
  1. TAMIFLU [Suspect]
     Route: 048
     Dates: start: 20050228, end: 20050304
  2. ZESULAN [Concomitant]
     Dosage: FORM: ORAL (NOS).
     Route: 048
     Dates: start: 20050228, end: 20050301
  3. ANTITUSSIVE NOS [Concomitant]
     Dosage: FORM: ORAL (NOS).
     Route: 048
     Dates: start: 20050228, end: 20050301
  4. PROPYLTHIOURACIL [Concomitant]
     Dosage: DRUG NAME ^PROPACIL TABLETS^
     Route: 048
     Dates: start: 20040615

REACTIONS (1)
  - INTESTINAL ISCHAEMIA [None]
